FAERS Safety Report 26164973 (Version 1)
Quarter: 2025Q4

REPORT INFORMATION
  Report Type: Spontaneous
  Country: US (occurrence: US)
  Receive Date: 20251216
  Receipt Date: 20251216
  Transmission Date: 20260117
  Serious: No
  Sender: BAYER HEALTHCARE PHARMACEUTICALS INC.
  Company Number: US-BAYER-2025A165013

PATIENT
  Sex: Female

DRUGS (1)
  1. LYNKUET [Suspect]
     Active Substance: ELINZANETANT
     Indication: Hot flush
     Dosage: 2 DF, HS
     Route: 048
     Dates: start: 20251207

REACTIONS (2)
  - Drug ineffective [None]
  - Product use complaint [None]

NARRATIVE: CASE EVENT DATE: 20251201
